FAERS Safety Report 6867800-X (Version None)
Quarter: 2010Q3

REPORT INFORMATION
  Report Type: 
  Country: None (occurrence: None)
  Receive Date: 20100721
  Receipt Date: 20100721
  Transmission Date: 20110219
  Serious: Yes (Hospitalization)
  Sender: FDA-Public Use
  Company Number: None

PATIENT
  Sex: Female
  Weight: 72.5755 kg

DRUGS (1)
  1. FOSAMAX PLUS D [Suspect]
     Dosage: 1 UNIT ONCE WEEKLY
     Dates: start: 20060101, end: 20070101

REACTIONS (1)
  - FEMUR FRACTURE [None]
